FAERS Safety Report 23771056 (Version 1)
Quarter: 2024Q2

REPORT INFORMATION
  Report Type: Spontaneous
  Country: US (occurrence: US)
  Receive Date: 20240423
  Receipt Date: 20240423
  Transmission Date: 20240716
  Serious: No
  Sender: FDA-Public Use
  Company Number: US-SANOFI-02019041

PATIENT
  Sex: Male

DRUGS (1)
  1. LANTUS SOLOSTAR [Suspect]
     Active Substance: INSULIN GLARGINE
     Dosage: 2X A DAY (14 UNITS IN MORNING AND 14 UNITS IN EVENING)

REACTIONS (3)
  - Discomfort [Unknown]
  - Inappropriate schedule of product administration [Unknown]
  - Poor quality product administered [Unknown]
